FAERS Safety Report 17137324 (Version 1)
Quarter: 2019Q4

REPORT INFORMATION
  Report Type: Report from Study
  Country: US (occurrence: US)
  Receive Date: 20191210
  Receipt Date: 20191210
  Transmission Date: 20200122
  Serious: Yes (Hospitalization)
  Sender: FDA-Public Use
  Company Number: US-ACTELION-A-NJ2019-199122

PATIENT
  Sex: Male
  Weight: 58.96 kg

DRUGS (2)
  1. UPTRAVI [Suspect]
     Active Substance: SELEXIPAG
     Indication: PULMONARY ARTERIAL HYPERTENSION
     Dosage: 400 MCG, BID
     Route: 048
  2. LETAIRIS [Concomitant]
     Active Substance: AMBRISENTAN

REACTIONS (1)
  - Internal haemorrhage [Unknown]
